FAERS Safety Report 25330635 (Version 1)
Quarter: 2025Q2

REPORT INFORMATION
  Report Type: Spontaneous
  Country: GB (occurrence: GB)
  Receive Date: 20250519
  Receipt Date: 20250519
  Transmission Date: 20250716
  Serious: Yes (Other)
  Sender: AMGEN
  Company Number: None

PATIENT
  Age: 80 Year
  Sex: Female

DRUGS (2)
  1. XGEVA [Suspect]
     Active Substance: DENOSUMAB
     Indication: Breast cancer
     Route: 058
  2. CALCIUM CARBONATE\CHOLECALCIFEROL [Concomitant]
     Active Substance: CALCIUM CARBONATE\CHOLECALCIFEROL

REACTIONS (6)
  - Neuropathy peripheral [Unknown]
  - Localised infection [Unknown]
  - Neuralgia [Unknown]
  - Mouth ulceration [Unknown]
  - Blister [Unknown]
  - Fatigue [Unknown]

NARRATIVE: CASE EVENT DATE: 20250512
